FAERS Safety Report 5542053-3 (Version None)
Quarter: 2007Q4

REPORT INFORMATION
  Report Type: 
  Country: None (occurrence: None)
  Receive Date: 20071205
  Receipt Date: 20071121
  Transmission Date: 20080405
  Serious: Yes (Hospitalization, Other)
  Sender: FDA-Public Use
  Company Number: TCI2007A06289

PATIENT
  Age: 66 Year
  Sex: Female

DRUGS (6)
  1. ACTOS [Suspect]
     Indication: TYPE 2 DIABETES MELLITUS
     Dosage: 30 MG (15 MG, 2 IN 1 D) PER ORAL
     Route: 048
     Dates: start: 20060217, end: 20070818
  2. AMLODIPINE BESYLATE [Concomitant]
  3. AMARYL [Concomitant]
  4. AMARYL [Concomitant]
  5. PRAVASTATIN [Concomitant]
  6. AROMASIN [Concomitant]

REACTIONS (13)
  - BRAIN NATRIURETIC PEPTIDE INCREASED [None]
  - CARDIAC FAILURE [None]
  - DIASTOLIC DYSFUNCTION [None]
  - DYSPNOEA [None]
  - GENERALISED OEDEMA [None]
  - HYPERCAPNIA [None]
  - HYPOXIA [None]
  - OXYGEN SATURATION DECREASED [None]
  - PCO2 INCREASED [None]
  - PLEURAL EFFUSION [None]
  - PO2 DECREASED [None]
  - RESPIRATORY DEPRESSION [None]
  - SLEEP APNOEA SYNDROME [None]
